FAERS Safety Report 9008269 (Version 1)
Quarter: 2013Q1

REPORT INFORMATION
  Report Type: Spontaneous
  Country: JP (occurrence: JP)
  Receive Date: 20130111
  Receipt Date: 20130111
  Transmission Date: 20140127
  Serious: Yes (Death, Hospitalization, Other)
  Sender: FDA-Public Use
  Company Number: PHHY2013JP002048

PATIENT
  Age: 39 Year
  Sex: Male

DRUGS (12)
  1. METHOTREXATE [Suspect]
     Indication: PROPHYLAXIS AGAINST GRAFT VERSUS HOST DISEASE
  2. METHYLPREDNISOLONE [Suspect]
     Indication: ACUTE GRAFT VERSUS HOST DISEASE IN SKIN
     Dosage: 1 MG/KG, UNK
  3. METHYLPREDNISOLONE [Suspect]
     Dosage: 5-80 MG, UNK
  4. CIPROFLOXACIN [Concomitant]
     Indication: VIRAL HAEMORRHAGIC CYSTITIS
  5. ACICLOVIR [Concomitant]
     Indication: INFECTION PROPHYLAXIS
     Route: 048
  6. FLUCONAZOLE [Concomitant]
     Indication: INFECTION PROPHYLAXIS
  7. IMMUNOGLOBULINS [Concomitant]
     Indication: INFECTION PROPHYLAXIS
  8. GRANULOCYTE STIMULATING FACTORS [Concomitant]
  9. CIDOFOVIR [Suspect]
     Indication: VIRAL HAEMORRHAGIC CYSTITIS
     Dosage: 5 MG/KG, UNK
  10. VIDARABINE [Suspect]
     Indication: ADENOVIRAL HAEMORRHAGIC CYSTITIS
     Dosage: 5 MG/KG, PER DAY
     Route: 042
  11. VIDARABINE [Suspect]
     Indication: VIRAL HAEMORRHAGIC CYSTITIS
  12. CICLOSPORIN [Suspect]
     Indication: PROPHYLAXIS AGAINST GRAFT VERSUS HOST DISEASE

REACTIONS (10)
  - Respiratory failure [Fatal]
  - Pneumonia viral [Fatal]
  - BK virus infection [Fatal]
  - Dyspnoea [Fatal]
  - Viral haemorrhagic cystitis [Unknown]
  - Urinary tract obstruction [Unknown]
  - Haemorrhage urinary tract [Unknown]
  - Renal impairment [Unknown]
  - Haematuria [Unknown]
  - Acute graft versus host disease in skin [Unknown]
